FAERS Safety Report 5452760-9 (Version None)
Quarter: 2007Q3

REPORT INFORMATION
  Report Type: 
  Country: None (occurrence: None)
  Receive Date: 20070914
  Receipt Date: 20070905
  Transmission Date: 20080115
  Serious: Yes (Hospitalization)
  Sender: FDA-Public Use
  Company Number: US-SANOFI-SYNTHELABO-F01200700803

PATIENT
  Sex: Female

DRUGS (6)
  1. CLONIDINE [Concomitant]
     Route: 065
     Dates: start: 20070307
  2. LEVOTHYROXINE SODIUM [Concomitant]
     Route: 065
     Dates: start: 20060815
  3. BEVACIZUMAB [Suspect]
     Route: 042
  4. FLUOROURACIL [Suspect]
     Route: 042
     Dates: start: 20070417, end: 20070417
  5. LEUCOVORIN CALCIUM [Suspect]
     Route: 042
  6. OXALIPLATIN [Suspect]
     Indication: RECTAL CANCER
     Route: 042

REACTIONS (4)
  - ARTHRALGIA [None]
  - ERYTHEMA [None]
  - OEDEMA PERIPHERAL [None]
  - POLYARTHRITIS [None]
